FAERS Safety Report 4465060-0 (Version None)
Quarter: 2004Q3

REPORT INFORMATION
  Report Type: 
  Country: None (occurrence: None)
  Receive Date: 20040929
  Receipt Date: 20040910
  Transmission Date: 20050211
  Serious: Yes (Death, Other)
  Sender: FDA-Public Use
  Company Number: USA040977891

PATIENT
  Sex: Female

DRUGS (1)
  1. INSULIN [Suspect]

REACTIONS (1)
  - DEATH [None]
